FAERS Safety Report 5616711-6 (Version None)
Quarter: 2008Q1

REPORT INFORMATION
  Report Type: 
  Country: None (occurrence: None)
  Receive Date: 20080207
  Receipt Date: 20080206
  Transmission Date: 20080703
  Serious: Yes (Other)
  Sender: FDA-Public Use
  Company Number: US-ALLERGAN-0801099US

PATIENT
  Sex: Male

DRUGS (3)
  1. RESTASIS [Suspect]
     Indication: DRY EYE
     Dosage: 1 GTT, Q12H
     Route: 047
     Dates: start: 20050101
  2. RESTASIS [Suspect]
     Indication: POSTOPERATIVE CARE
     Dosage: 1 GTT, Q12H
     Route: 047
     Dates: start: 20070524
  3. PREDNISOLONE ACETATE SUS [Concomitant]
     Indication: PROPHYLAXIS
     Dosage: 1 GTT, BID
     Route: 047

REACTIONS (1)
  - CORNEAL OEDEMA [None]
